FAERS Safety Report 4581187-7 (Version None)
Quarter: 2005Q1

REPORT INFORMATION
  Report Type: 
  Country: None (occurrence: None)
  Receive Date: 20050214
  Receipt Date: 20040826
  Transmission Date: 20050727
  Serious: No
  Sender: FDA-Public Use
  Company Number: US-GLAXOSMITHKLINE-A0523633A

PATIENT
  Age: 38 Year
  Sex: Female

DRUGS (5)
  1. LAMICTAL [Suspect]
     Indication: BIPOLAR DISORDER
     Dosage: 100MG PER DAY
     Route: 048
     Dates: start: 20040701, end: 20040824
  2. RESTORIL [Concomitant]
  3. CELEXA [Concomitant]
  4. CONCERTA [Concomitant]
  5. XANAX [Concomitant]

REACTIONS (2)
  - HYPERHIDROSIS [None]
  - LYMPHADENOPATHY [None]
